FAERS Safety Report 7084214-0 (Version None)
Quarter: 2010Q4

REPORT INFORMATION
  Report Type: 
  Country: None (occurrence: None)
  Receive Date: 20101104
  Receipt Date: 20101026
  Transmission Date: 20110411
  Serious: Yes (Other)
  Sender: FDA-Public Use
  Company Number: CHPA2010GB16525

PATIENT
  Age: 27 Year
  Sex: Male

DRUGS (10)
  1. IBUPROFEN [Suspect]
     Dosage: UNK, UNK
     Route: 048
     Dates: start: 20020820
  2. LOFEPRAMINE [Suspect]
     Dosage: UNK, UNK
     Route: 065
  3. SEROXAT ^SK+F^ [Suspect]
     Indication: PHOBIA
     Dosage: 20 MG, QD
     Route: 065
     Dates: start: 19990901, end: 20021201
  4. SEROXAT ^SK+F^ [Suspect]
     Dosage: 50 MG, QD
     Route: 065
  5. NUROFEN [Suspect]
     Dosage: UNK, UNK
     Route: 065
     Dates: start: 20020820
  6. CODEINE [Suspect]
     Dosage: UNK, UNK
     Route: 065
  7. COCAINE [Concomitant]
     Dosage: UNK, UNK
     Route: 065
  8. FLUOXETINE [Concomitant]
     Dosage: UNK, UNK
     Route: 065
  9. LITHIUM [Concomitant]
     Dosage: UNK, UNK
     Route: 065
  10. METHYLENEDIOXYMETHAMPHETAMINE [Concomitant]
     Dosage: UNK, UNK
     Route: 065

REACTIONS (10)
  - AGGRESSION [None]
  - CONSTIPATION [None]
  - DEPRESSION [None]
  - DRUG WITHDRAWAL SYNDROME [None]
  - DRY MOUTH [None]
  - SEXUAL DYSFUNCTION [None]
  - SOCIAL PHOBIA [None]
  - SUICIDAL IDEATION [None]
  - SUICIDE ATTEMPT [None]
  - VISION BLURRED [None]
